FAERS Safety Report 6787400-X (Version None)
Quarter: 2010Q2

REPORT INFORMATION
  Report Type: 
  Country: None (occurrence: None)
  Receive Date: 20100623
  Receipt Date: 20070629
  Transmission Date: 20101027
  Serious: Yes (Hospitalization, Other)
  Sender: FDA-Public Use
  Company Number: US-PFIZER INC-2007027727

PATIENT
  Sex: Male
  Weight: 153.8 kg

DRUGS (2)
  1. GEODON [Suspect]
     Indication: AFFECTIVE DISORDER
     Dates: start: 20070212
  2. LAMICTAL [Concomitant]

REACTIONS (1)
  - DYSTONIA [None]
